FAERS Safety Report 9476290 (Version 2)
Quarter: 2013Q3

REPORT INFORMATION
  Report Type: Spontaneous
  Country: AU (occurrence: AU)
  Receive Date: 20130826
  Receipt Date: 20130826
  Transmission Date: 20140515
  Serious: Yes (Disabling)
  Sender: FDA-Public Use
  Company Number: AU-SANOFI-AVENTIS-199403951HAG2

PATIENT
  Age: 55 Year
  Sex: Male

DRUGS (8)
  1. CEFOTAXIME SODIUM [Suspect]
     Indication: SEPSIS
     Route: 042
     Dates: start: 19931101, end: 19931102
  2. LASIX [Suspect]
     Indication: GLOMERULONEPHRITIS CHRONIC
     Route: 042
     Dates: start: 19931101, end: 19931102
  3. PHYTOMENADIONE [Suspect]
     Route: 042
     Dates: start: 19931101
  4. RANITIDINE [Suspect]
     Indication: GASTRIC ULCER
     Route: 042
     Dates: start: 19931101
  5. METRONIDAZOLE [Suspect]
     Indication: PERITONITIS
     Route: 042
     Dates: start: 19931101
  6. LACTULOSE [Suspect]
     Indication: SEPSIS
     Route: 048
     Dates: start: 19931101
  7. HYDROCORTISONE [Suspect]
     Route: 042
     Dates: start: 19931101
  8. DIGOXIN [Suspect]
     Indication: ARRHYTHMIA
     Dates: start: 19931101

REACTIONS (1)
  - Deafness [Not Recovered/Not Resolved]
